FAERS Safety Report 5835423-7 (Version None)
Quarter: 2008Q3

REPORT INFORMATION
  Report Type: 
  Country: None (occurrence: None)
  Receive Date: 20080806
  Receipt Date: 20080728
  Transmission Date: 20090109
  Serious: Yes (Other)
  Sender: FDA-Public Use
  Company Number: US-JNJFOC-20080502670

PATIENT
  Sex: Male

DRUGS (4)
  1. LEVAQUIN [Suspect]
     Indication: PROSTATITIS
  2. LEVAQUIN [Suspect]
     Indication: URINARY TRACT INFECTION
  3. CIPROFLOXACIN HCL [Suspect]
     Indication: DRUG USE FOR UNKNOWN INDICATION
     Route: 065
  4. MOTRIN [Concomitant]
     Route: 065

REACTIONS (25)
  - ARTHRALGIA [None]
  - BLOOD TEST ABNORMAL [None]
  - BONE MARROW OEDEMA [None]
  - BONE PAIN [None]
  - CANDIDIASIS [None]
  - CARDIAC DISORDER [None]
  - DIPLOPIA [None]
  - DYSPEPSIA [None]
  - EAR INFECTION [None]
  - FEELING ABNORMAL [None]
  - FIBROMYALGIA [None]
  - HEPATIC CYST [None]
  - JOINT SWELLING [None]
  - LYMPHADENOPATHY [None]
  - MYALGIA [None]
  - NEUROPATHY PERIPHERAL [None]
  - RASH [None]
  - RENAL CYST [None]
  - SKIN INJURY [None]
  - SWELLING [None]
  - SYNOVIAL CYST [None]
  - TENDONITIS [None]
  - TINNITUS [None]
  - TOOTH DISORDER [None]
  - WRIST FRACTURE [None]
